FAERS Safety Report 21604643 (Version 2)
Quarter: 2022Q4

REPORT INFORMATION
  Report Type: Spontaneous
  Country: IT (occurrence: IT)
  Receive Date: 20221116
  Receipt Date: 20221209
  Transmission Date: 20230113
  Serious: Yes (Other)
  Sender: FDA-Public Use
  Company Number: None

PATIENT
  Age: 44 Year
  Sex: Female
  Weight: 55 kg

DRUGS (7)
  1. FLUOROURACIL [Suspect]
     Active Substance: FLUOROURACIL
     Indication: Rectal cancer
     Dosage: DURATION : 24 DAYS
     Dates: start: 20221001, end: 20221025
  2. OXALIPLATIN [Suspect]
     Active Substance: OXALIPLATIN
     Indication: Rectal cancer
     Dosage: CONCENTRATE FOR SOLUTION FOR INJECTION/INFUSION , DURATION : 24 DAYS
     Dates: start: 20221001, end: 20221025
  3. IRINOTECAN [Suspect]
     Active Substance: IRINOTECAN
     Indication: Rectal cancer
     Dosage: 250G FOR 60 MINUTES , CONCENTRATE FOR SOLUTION FOR INJECTION/INFUSION , UNIT DOSE :  250 MG , FREQUE
     Dates: start: 20221001, end: 20221025
  4. MVASI [Suspect]
     Active Substance: BEVACIZUMAB-AWWB
     Indication: Rectal cancer
     Dosage: 275 MG FOR 90 MINUTES   , CONCENTRATE FOR CONCENTRATE FOR SOLUTION FOR INFUSION , UNIT DOSE : 275 MG
     Dates: start: 20221001, end: 20221025
  5. ONDANSETRON [Concomitant]
     Active Substance: ONDANSETRON
     Indication: Nausea
     Dosage: 8MG FOR 15 MINUTES , UNIT DOSE :  8 MG , FREQUENCY TIME : 15 MIN  , DURATION : 24  DAYS
     Dates: start: 20221001, end: 20221025
  6. DEXAMETHASONE [Concomitant]
     Active Substance: DEXAMETHASONE
     Indication: Hypercalcaemia of malignancy
     Dosage: 8MG FOR 15 MINUTES , UNIT DOSE : 8 MG  , FREQUENCY TIME : 15 MIN , DURATION : 24 DAYS
     Dates: start: 20221001, end: 20221025
  7. FOLIC ACID DOC GENERICI [Concomitant]
     Indication: Vitamin supplementation

REACTIONS (3)
  - Tongue oedema [Recovered/Resolved]
  - Vomiting [Recovering/Resolving]
  - Nausea [Recovering/Resolving]

NARRATIVE: CASE EVENT DATE: 20221025
